FAERS Safety Report 20096397 (Version 3)
Quarter: 2021Q4

REPORT INFORMATION
  Report Type: Spontaneous
  Country: VN (occurrence: VN)
  Receive Date: 20211122
  Receipt Date: 20211203
  Transmission Date: 20220303
  Serious: Yes (Death, Other)
  Sender: FDA-Public Use
  Company Number: VN-BoehringerIngelheim-2021-BI-137930

PATIENT
  Age: 61 Year
  Sex: Male
  Weight: 57 kg

DRUGS (1)
  1. ALTEPLASE [Suspect]
     Active Substance: ALTEPLASE
     Indication: Cerebrovascular accident
     Route: 042
     Dates: start: 20201206

REACTIONS (7)
  - Lung neoplasm malignant [Fatal]
  - Acute pulmonary oedema [Not Recovered/Not Resolved]
  - Haemorrhage intracranial [Not Recovered/Not Resolved]
  - Pneumonia [Not Recovered/Not Resolved]
  - Pleural effusion [Not Recovered/Not Resolved]
  - NIH stroke scale score increased [Not Recovered/Not Resolved]
  - Superficial vein thrombosis [Not Recovered/Not Resolved]

NARRATIVE: CASE EVENT DATE: 20201206
